FAERS Safety Report 4954716-9 (Version None)
Quarter: 2006Q1

REPORT INFORMATION
  Report Type: 
  Country: None (occurrence: None)
  Receive Date: 20060131
  Receipt Date: 20050412
  Transmission Date: 20060701
  Serious: Yes (Hospitalization)
  Sender: FDA-Public Use
  Company Number: 05P-163-0296938-00

PATIENT
  Age: 63 Year
  Sex: Female

DRUGS (3)
  1. OMNICEF [Suspect]
     Indication: SINOBRONCHITIS
     Dosage: 300 MG, 2 IN 1 D
     Dates: start: 20050314, end: 20050324
  2. ANTIHYPERTENSIVES [Concomitant]
  3. CHOLESTEROL - AND TRIGLYCERIDE REDUCERS [Concomitant]

REACTIONS (2)
  - CLOSTRIDIAL INFECTION [None]
  - DIARRHOEA [None]
